FAERS Safety Report 13817413 (Version 1)
Quarter: 2017Q3

REPORT INFORMATION
  Report Type: Spontaneous
  Country: JP (occurrence: JP)
  Receive Date: 20170731
  Receipt Date: 20170731
  Transmission Date: 20171127
  Serious: Yes (Other)
  Sender: FDA-Public Use
  Company Number: PHHY2017JP103688

PATIENT
  Age: 65 Year
  Sex: Male
  Weight: 54 kg

DRUGS (9)
  1. TS-1 [Suspect]
     Active Substance: GIMERACIL\OTERACIL\TEGAFUR
     Indication: OESOPHAGEAL SQUAMOUS CELL CARCINOMA STAGE IV
     Dosage: 80 MG/M2, CYCLIC
     Route: 065
     Dates: start: 201010
  2. TS-1 [Suspect]
     Active Substance: GIMERACIL\OTERACIL\TEGAFUR
     Dosage: 50 MG/M2, CYCLIC
     Route: 065
     Dates: start: 201010
  3. CISPLATIN. [Suspect]
     Active Substance: CISPLATIN
     Indication: OESOPHAGEAL SQUAMOUS CELL CARCINOMA STAGE IV
     Dosage: 60 MG/M2, CYCLIC
     Route: 065
     Dates: start: 201010
  4. DOCETAXEL. [Suspect]
     Active Substance: DOCETAXEL
     Indication: OESOPHAGEAL SQUAMOUS CELL CARCINOMA STAGE IV
     Dosage: 40 MG/M2, CYCLIC
     Route: 065
     Dates: start: 201010
  5. CISPLATIN. [Suspect]
     Active Substance: CISPLATIN
     Dosage: 40 MG/M2, CYCLIC
     Route: 065
     Dates: start: 201010
  6. CISPLATIN. [Suspect]
     Active Substance: CISPLATIN
     Indication: GASTRIC CANCER STAGE II
     Dosage: 50 MG/M2, CYCLIC
     Route: 065
     Dates: start: 201010
  7. TS-1 [Suspect]
     Active Substance: GIMERACIL\OTERACIL\TEGAFUR
     Indication: GASTRIC CANCER STAGE II
     Dosage: 65 MG/M2, CYCLIC
     Route: 065
     Dates: start: 201010
  8. DOCETAXEL. [Suspect]
     Active Substance: DOCETAXEL
     Indication: GASTRIC CANCER STAGE II
     Dosage: 35 MG/M2, CYCLIC
     Route: 065
     Dates: start: 201010
  9. DOCETAXEL. [Suspect]
     Active Substance: DOCETAXEL
     Dosage: 30 MG/M2, CYCLIC
     Route: 065
     Dates: start: 201010

REACTIONS (7)
  - Decreased appetite [Unknown]
  - Neutropenia [Unknown]
  - Thrombocytopenia [Unknown]
  - Blood creatinine increased [Unknown]
  - Anaemia [Unknown]
  - Nausea [Unknown]
  - Therapeutic response decreased [Unknown]
